FAERS Safety Report 9958690 (Version 1)
Quarter: 2014Q1

REPORT INFORMATION
  Report Type: Spontaneous
  Country: FR (occurrence: None)
  Receive Date: 20140228
  Receipt Date: 20140228
  Transmission Date: 20141002
  Serious: Yes (Other)
  Sender: FDA-Public Use
  Company Number: IMP_07491_2014

PATIENT
  Age: 57 Year
  Sex: Female

DRUGS (1)
  1. OMEPRAZOLE [Suspect]
     Indication: PRODUCT USED FOR UNKNOWN INDICATION
     Dosage: (DF)

REACTIONS (6)
  - Systemic lupus erythematosus [None]
  - Bicytopenia [None]
  - Evans syndrome [None]
  - Lupus vasculitis [None]
  - Drug ineffective [None]
  - Cutaneous lupus erythematosus [None]
